FAERS Safety Report 8298991-4 (Version None)
Quarter: 2012Q2

REPORT INFORMATION
  Report Type: 
  Country: None (occurrence: None)
  Receive Date: 20120419
  Receipt Date: 20120413
  Transmission Date: 20120825
  Serious: Yes (Hospitalization)
  Sender: FDA-Public Use
  Company Number: US-B.I. PHARMACEUTICALS,INC./RIDGEFIELD-2012-BP-07044BP

PATIENT
  Sex: Female

DRUGS (14)
  1. SEROQUEL [Suspect]
     Indication: SCHIZOPHRENIA
     Dosage: 400 MG
     Route: 048
     Dates: start: 20020101, end: 20100101
  2. HYDROCODONE BITARTRATE AND ACETAMINOPHEN [Concomitant]
     Indication: BACK PAIN
     Route: 048
     Dates: start: 19980101
  3. SEROQUEL [Suspect]
     Dosage: 50 MG
     Route: 048
     Dates: start: 20100101
  4. TRAZODONE HCL [Concomitant]
     Indication: INSOMNIA
     Dosage: 150 MG
     Route: 048
     Dates: start: 20000101
  5. KLONOPIN [Concomitant]
     Indication: PANIC ATTACK
     Dosage: 1.5 MG
     Route: 048
     Dates: start: 20020101
  6. SPIRIVA [Suspect]
     Indication: CHRONIC OBSTRUCTIVE PULMONARY DISEASE
     Dosage: 18 MCG
     Route: 055
     Dates: start: 20040101
  7. SYMBICORT [Concomitant]
     Indication: CHRONIC OBSTRUCTIVE PULMONARY DISEASE
     Dosage: 4 PUF
     Route: 055
     Dates: start: 20020101
  8. LEXAPRO [Concomitant]
     Indication: BIPOLAR DISORDER
     Dosage: 30 MG
     Route: 048
     Dates: start: 20020101
  9. SPIRIVA [Suspect]
     Indication: EMPHYSEMA
  10. POTASSIUM CHLORIDE [Concomitant]
     Indication: MINERAL SUPPLEMENTATION
     Route: 048
  11. EFFEXOR [Concomitant]
     Indication: BIPOLAR DISORDER
     Dosage: 50 MG
     Route: 048
     Dates: start: 20020101
  12. SPIRIVA [Suspect]
     Indication: BRONCHITIS CHRONIC
  13. KLONOPIN [Concomitant]
     Indication: ANXIETY
  14. VITAMIN D [Concomitant]
     Indication: VITAMIN SUPPLEMENTATION
     Route: 048

REACTIONS (5)
  - VOMITING [None]
  - PAIN [None]
  - CONVULSION [None]
  - DIARRHOEA [None]
  - DYSPNOEA [None]
